FAERS Safety Report 22262805 (Version 1)
Quarter: 2023Q2

REPORT INFORMATION
  Report Type: Report from Study
  Country: ES (occurrence: ES)
  Receive Date: 20230428
  Receipt Date: 20230428
  Transmission Date: 20230721
  Serious: Yes (Hospitalization)
  Sender: FDA-Public Use
  Company Number: ES-TAKEDA-ES201806267

PATIENT
  Age: 13 Year
  Sex: Male

DRUGS (32)
  1. ADVATE [Suspect]
     Active Substance: ANTIHEMOPHILIC FACTOR, HUMAN RECOMBINANT
     Indication: Prophylaxis
     Dosage: UNK
     Route: 042
     Dates: start: 20120305
  2. ADVATE [Suspect]
     Active Substance: ANTIHEMOPHILIC FACTOR, HUMAN RECOMBINANT
     Indication: Prophylaxis
     Dosage: UNK
     Route: 042
     Dates: start: 20120305
  3. ADVATE [Suspect]
     Active Substance: ANTIHEMOPHILIC FACTOR, HUMAN RECOMBINANT
     Indication: Prophylaxis
     Dosage: UNK
     Route: 042
     Dates: start: 20120305
  4. ADVATE [Suspect]
     Active Substance: ANTIHEMOPHILIC FACTOR, HUMAN RECOMBINANT
     Dosage: 1500 INTERNATIONAL UNIT
     Route: 042
     Dates: start: 20170426
  5. ADVATE [Suspect]
     Active Substance: ANTIHEMOPHILIC FACTOR, HUMAN RECOMBINANT
     Dosage: 1500 INTERNATIONAL UNIT
     Route: 042
     Dates: start: 20170426
  6. ADVATE [Suspect]
     Active Substance: ANTIHEMOPHILIC FACTOR, HUMAN RECOMBINANT
     Dosage: 1500 INTERNATIONAL UNIT
     Route: 042
     Dates: start: 20170426
  7. Aceoto plus [Concomitant]
     Indication: Ear infection
  8. CARBOCYSTEINE [Concomitant]
     Active Substance: CARBOCYSTEINE
     Indication: Sinusitis
  9. AMOXICILLIN [Concomitant]
     Active Substance: AMOXICILLIN
     Indication: Tonsillitis
  10. AMOXICILLIN\CLAVULANIC ACID [Concomitant]
     Active Substance: AMOXICILLIN\CLAVULANIC ACID
     Indication: Antibiotic prophylaxis
  11. ACETAMINOPHEN [Concomitant]
     Active Substance: ACETAMINOPHEN
     Indication: Tendonitis
  12. AMOXICILLIN\CLAVULANATE POTASSIUM [Concomitant]
     Active Substance: AMOXICILLIN\CLAVULANATE POTASSIUM
     Indication: Cellulitis
  13. CEFUROXIME [Concomitant]
     Active Substance: CEFUROXIME
     Indication: Hidradenitis
  14. CEFUROXIME [Concomitant]
     Active Substance: CEFUROXIME
     Indication: Ear infection
  15. CETIRIZINE HYDROCHLORIDE\PSEUDOEPHEDRINE HYDROCHLORIDE [Concomitant]
     Active Substance: CETIRIZINE HYDROCHLORIDE\PSEUDOEPHEDRINE HYDROCHLORIDE
     Indication: Conjunctivitis
  16. CETRAXAL [Concomitant]
     Active Substance: CIPROFLOXACIN
     Indication: Ear infection
  17. CETRAXAL OTICO [Concomitant]
     Indication: Ear pain
  18. DISNEUMON PERNASAL [Concomitant]
     Indication: Sinusitis
  19. DEXAMETHASONE [Concomitant]
     Active Substance: DEXAMETHASONE
     Indication: Ear infection
  20. FLUMIL                             /00082801/ [Concomitant]
     Indication: Infection
  21. FLUMIL                             /00082801/ [Concomitant]
     Indication: Productive cough
  22. METAMIZOLE SODIUM [Concomitant]
     Active Substance: METAMIZOLE SODIUM
     Indication: Ear infection
  23. METAMIZOLE SODIUM [Concomitant]
     Active Substance: METAMIZOLE SODIUM
     Indication: Tendonitis
  24. MUPIROCIN [Concomitant]
     Active Substance: MUPIROCIN
     Indication: Hidradenitis
  25. OTIX                               /01225101/ [Concomitant]
     Indication: Ear infection
  26. OTOGEN                             /00047102/ [Concomitant]
     Indication: Ear infection
  27. RHINOMER [Concomitant]
     Indication: Ear pain
  28. SYNALAR [Concomitant]
     Active Substance: FLUOCINOLONE ACETONIDE
     Indication: Ear pain
  29. ZENAVAN [Concomitant]
     Indication: Tendonitis
  30. ZINNAT                             /00454602/ [Concomitant]
     Indication: Ear infection
  31. ZINNAT                             /00454602/ [Concomitant]
     Indication: Influenza
  32. ZINNAT                             /00454602/ [Concomitant]
     Indication: Productive cough

REACTIONS (1)
  - Head injury [Recovered/Resolved]

NARRATIVE: CASE EVENT DATE: 20170427
